FAERS Safety Report 8905371 (Version 1)
Quarter: 2012Q4

REPORT INFORMATION
  Report Type: 
  Country: US (occurrence: US)
  Receive Date: 20121112
  Receipt Date: 20121112
  Transmission Date: 20130627
  Serious: Yes (Hospitalization)
  Sender: FDA-Public Use
  Company Number: US-BAYER-2012-116718

PATIENT
  Age: 36 Year
  Sex: Female
  Weight: 76 kg

DRUGS (9)
  1. OCELLA [Suspect]
  2. NAPROXEN [Concomitant]
     Dosage: 500 mg, UNK
  3. CYCLOBENZAPRINE [Concomitant]
     Dosage: 10 mg, UNK
  4. AZITHROMYCIN [Concomitant]
     Dosage: 250 mg, UNK
  5. LIOTHYRONINE [Concomitant]
     Dosage: 5 ?g, UNK
  6. SYNTHROID [Concomitant]
     Dosage: 100 ?g, daily
  7. SPIRONOLACTONE [Concomitant]
     Dosage: 25 mg, BID, daily
  8. METFORMIN [Concomitant]
     Dosage: 500 mg, BID, daily
  9. CYTOMEL [Concomitant]
     Dosage: 5 ?g, daily

REACTIONS (2)
  - Deep vein thrombosis [None]
  - Off label use [None]
